FAERS Safety Report 11655631 (Version 1)
Quarter: 2015Q4

REPORT INFORMATION
  Report Type: Spontaneous
  Country: US (occurrence: US)
  Receive Date: 20151023
  Receipt Date: 20151023
  Transmission Date: 20160304
  Serious: No
  Sender: FDA-Public Use
  Company Number: US-ASTELLAS-2015US003951

PATIENT
  Age: 48 Year
  Sex: Male

DRUGS (3)
  1. MYCAMINE [Suspect]
     Active Substance: MICAFUNGIN SODIUM
     Indication: OBESITY SURGERY
     Dosage: UNK UNK, UNKNOWN FREQ.
     Route: 042
     Dates: start: 20150123, end: 20150201
  2. MYCAMINE [Suspect]
     Active Substance: MICAFUNGIN SODIUM
     Indication: ACUTE RESPIRATORY FAILURE
  3. MYCAMINE [Suspect]
     Active Substance: MICAFUNGIN SODIUM
     Indication: SEPSIS

REACTIONS (1)
  - Product use issue [Unknown]

NARRATIVE: CASE EVENT DATE: 20150123
